FAERS Safety Report 10821133 (Version 2)
Quarter: 2015Q2

REPORT INFORMATION
  Report Type: Report from Study
  Country: BR (occurrence: BR)
  Receive Date: 20150218
  Receipt Date: 20150519
  Transmission Date: 20150821
  Serious: Yes (Hospitalization, Other)
  Sender: FDA-Public Use
  Company Number: BR-ABBVIE-15K-020-1346655-00

PATIENT
  Age: 58 Year
  Sex: Male

DRUGS (1)
  1. HUMIRA [Suspect]
     Active Substance: ADALIMUMAB
     Indication: ANKYLOSING SPONDYLITIS
     Route: 065
     Dates: start: 20140225

REACTIONS (9)
  - Diarrhoea [Not Recovered/Not Resolved]
  - Arthritis [Unknown]
  - Abdominal pain [Not Recovered/Not Resolved]
  - Osteoarthritis [Unknown]
  - Gastrointestinal disorder [Not Recovered/Not Resolved]
  - Infection [Unknown]
  - Hypophagia [Unknown]
  - Aphthous stomatitis [Unknown]
  - Diarrhoea [Recovered/Resolved]

NARRATIVE: CASE EVENT DATE: 20150201
